FAERS Safety Report 9048449 (Version 1)
Quarter: 2013Q1

REPORT INFORMATION
  Report Type: Spontaneous
  Country: US (occurrence: None)
  Receive Date: 20130130
  Receipt Date: 20130130
  Transmission Date: 20140127
  Serious: Yes (Hospitalization)
  Sender: FDA-Public Use
  Company Number: None

PATIENT
  Age: 60 Year
  Sex: Male
  Weight: 81.8 kg

DRUGS (12)
  1. PLAVIX [Suspect]
     Route: 048
  2. ASA [Suspect]
     Route: 048
  3. LASIX [Concomitant]
  4. CARVEDILOL [Concomitant]
  5. SPIRONOLACTONE [Concomitant]
  6. PROTONIX [Concomitant]
  7. GLIPIZIDE XL [Concomitant]
  8. AMIODARONE [Concomitant]
  9. RANITIDINE [Concomitant]
  10. LIPITOR [Concomitant]
  11. ALLOPURINOL [Concomitant]
  12. LANTUS [Concomitant]

REACTIONS (6)
  - Gastrointestinal haemorrhage [None]
  - Gastrointestinal arteriovenous malformation [None]
  - Acute myocardial infarction [None]
  - Haemorrhage [None]
  - Anaemia [None]
  - Ischaemia [None]
